FAERS Safety Report 23754239 (Version 1)
Quarter: 2024Q2

REPORT INFORMATION
  Report Type: Report from Study
  Country: US (occurrence: US)
  Receive Date: 20240418
  Receipt Date: 20240418
  Transmission Date: 20240715
  Serious: Yes (Other)
  Sender: FDA-Public Use
  Company Number: US-002147023-NVSC2024US077665

PATIENT
  Age: 62 Year
  Sex: Male
  Weight: 73.94 kg

DRUGS (2)
  1. ENTRESTO [Suspect]
     Active Substance: SACUBITRIL\VALSARTAN
     Indication: Cardiac failure chronic
     Dosage: 24.26 MG, BID
     Route: 048
     Dates: start: 20240210
  2. ENTRESTO [Suspect]
     Active Substance: SACUBITRIL\VALSARTAN
     Indication: Hypertension

REACTIONS (12)
  - Brain injury [Unknown]
  - Cardiac failure chronic [Unknown]
  - Liver injury [Unknown]
  - Renal injury [Unknown]
  - Bladder injury [Unknown]
  - Injury [Unknown]
  - Nerve compression [Unknown]
  - Sleep apnoea syndrome [Unknown]
  - Dizziness [Unknown]
  - Cardiac disorder [Unknown]
  - Heart rate abnormal [Unknown]
  - Weight decreased [Unknown]

NARRATIVE: CASE EVENT DATE: 20240210
